FAERS Safety Report 12121611 (Version 3)
Quarter: 2016Q2

REPORT INFORMATION
  Report Type: Report from Study
  Country: US (occurrence: US)
  Receive Date: 20160226
  Receipt Date: 20160622
  Transmission Date: 20160815
  Serious: Yes (Hospitalization)
  Sender: FDA-Public Use
  Company Number: US-TARO-2016TAR00168

PATIENT
  Age: 36 Year
  Sex: Female
  Weight: 162.36 kg

DRUGS (6)
  1. PERPHENAZINE. [Concomitant]
     Active Substance: PERPHENAZINE
     Indication: SCHIZOPHRENIA
     Dosage: 8 MG, 1X/DAY
     Route: 048
     Dates: start: 201408
  2. SPERMICIDE [Concomitant]
     Indication: CONTRACEPTION
     Dosage: 1 APPLICATION, AS NEEDED
     Route: 067
     Dates: start: 20150415
  3. QUETIAPINE. [Concomitant]
     Active Substance: QUETIAPINE
     Indication: SCHIZOPHRENIA
     Dosage: 400 MG, 1X/DAY
     Route: 048
     Dates: start: 20150513
  4. ADVIL [Concomitant]
     Active Substance: IBUPROFEN
     Indication: NASOPHARYNGITIS
     Dosage: 200 MG, 1X/DAY
     Route: 048
     Dates: start: 20160119, end: 20160119
  5. DAPSONE GEL [Suspect]
     Active Substance: DAPSONE
     Indication: ACNE
     Dosage: 1APPLICATION, 2X/DAY
     Route: 061
     Dates: start: 20151125, end: 20160214
  6. CELEXA [Concomitant]
     Active Substance: CITALOPRAM HYDROBROMIDE
     Indication: DEPRESSION
     Dosage: 20 MG, 1X/DAY
     Route: 048
     Dates: start: 201408

REACTIONS (1)
  - Chest pain [Recovered/Resolved]

NARRATIVE: CASE EVENT DATE: 20160213
